FAERS Safety Report 12591471 (Version 1)
Quarter: 2016Q3

REPORT INFORMATION
  Report Type: Spontaneous
  Country: US (occurrence: None)
  Receive Date: 20160725
  Receipt Date: 20160725
  Transmission Date: 20161109
  Serious: Yes (Disabling)
  Sender: FDA-Public Use
  Company Number: None

PATIENT
  Age: 53 Year
  Sex: Female
  Weight: 65.77 kg

DRUGS (8)
  1. SPIRONOLACT [Concomitant]
  2. AMLODIPINE [Concomitant]
     Active Substance: AMLODIPINE BESYLATE
  3. VITAMIN D3 [Concomitant]
     Active Substance: CHOLECALCIFEROL
  4. VALSARTAN. [Concomitant]
     Active Substance: VALSARTAN
  5. LITHIUM. [Concomitant]
     Active Substance: LITHIUM
  6. VRAYLAR [Suspect]
     Active Substance: CARIPRAZINE
     Indication: BIPOLAR DISORDER
     Route: 048
     Dates: start: 20160504, end: 20160708
  7. PRAVASTATIN. [Concomitant]
     Active Substance: PRAVASTATIN
  8. SINGULAIR [Concomitant]
     Active Substance: MONTELUKAST SODIUM

REACTIONS (2)
  - Blood potassium decreased [None]
  - Hypertension [None]

NARRATIVE: CASE EVENT DATE: 20160625
